FAERS Safety Report 8795287 (Version 1)
Quarter: 2012Q4

REPORT INFORMATION
  Report Type: 
  Country: US (occurrence: US)
  Receive Date: 20120917
  Receipt Date: 20120917
  Transmission Date: 20130627
  Serious: No
  Sender: FDA-Public Use
  Company Number: US-009507513-1208USA011875

PATIENT

DRUGS (6)
  1. PEGINTRON [Suspect]
     Dosage: UNK
  2. REBETOL [Suspect]
     Dosage: UNK
     Route: 048
  3. TELAPREVIR [Suspect]
     Dosage: 750 mg, tid
     Route: 048
  4. ZOLOFT [Concomitant]
     Dosage: 50 UNK, UNK
  5. PROMETHAZINE [Concomitant]
     Dosage: 12.5 UNK, UNK
  6. BENADRYL [Concomitant]

REACTIONS (3)
  - Fatigue [Unknown]
  - Nausea [Unknown]
  - Anaemia [Unknown]
